FAERS Safety Report 5386720-3 (Version None)
Quarter: 2007Q3

REPORT INFORMATION
  Report Type: 
  Country: None (occurrence: None)
  Receive Date: 20070713
  Receipt Date: 20070703
  Transmission Date: 20080115
  Serious: Yes (Other)
  Sender: FDA-Public Use
  Company Number: BR-ROCHE-505707

PATIENT
  Age: 30 Year
  Sex: Female

DRUGS (2)
  1. ISOTRETINOIN [Suspect]
     Indication: ACNE
     Route: 048
     Dates: start: 20061101, end: 20070601
  2. CONTRACEPTIVE [Concomitant]
     Indication: CONTRACEPTION
     Dates: end: 20070601

REACTIONS (2)
  - NO ADVERSE REACTION [None]
  - PREGNANCY [None]
